FAERS Safety Report 9296841 (Version 1)
Quarter: 2013Q2

REPORT INFORMATION
  Report Type: Spontaneous
  Country: US (occurrence: US)
  Receive Date: 20130517
  Receipt Date: 20130517
  Transmission Date: 20140414
  Serious: Yes (Other)
  Sender: FDA-Public Use
  Company Number: US-PFIZER INC-2013150925

PATIENT
  Age: 69 Year
  Sex: Female

DRUGS (1)
  1. ANTIVERT [Suspect]
     Indication: BALANCE DISORDER
     Dosage: UNK

REACTIONS (1)
  - Anaphylactic reaction [Unknown]
